FAERS Safety Report 7508842-0 (Version None)
Quarter: 2011Q2

REPORT INFORMATION
  Report Type: 
  Country: None (occurrence: None)
  Receive Date: 20110527
  Receipt Date: 20110513
  Transmission Date: 20111010
  Serious: Yes (Other)
  Sender: FDA-Public Use
  Company Number: PHHY2011JP35898

PATIENT
  Age: 62 Year
  Sex: Female

DRUGS (2)
  1. SANDOSTATIN [Suspect]
     Indication: ANAL FISTULA
     Dosage: 300 UG, DAILY
     Route: 058
  2. SANDOSTATIN [Suspect]
     Indication: GASTROINTESTINAL DISORDER
     Dosage: 200 UG, DAILY
     Route: 058

REACTIONS (5)
  - ALANINE AMINOTRANSFERASE INCREASED [None]
  - VAGINAL DISCHARGE [None]
  - ASPARTATE AMINOTRANSFERASE INCREASED [None]
  - VAGINAL INFECTION [None]
  - LIVER FUNCTION TEST ABNORMAL [None]
